FAERS Safety Report 9468581 (Version 4)
Quarter: 2014Q1

REPORT INFORMATION
  Report Type: Report from Study
  Country: JP (occurrence: JP)
  Receive Date: 20130821
  Receipt Date: 20140205
  Transmission Date: 20141002
  Serious: Yes (Other)
  Sender: FDA-Public Use
  Company Number: JP-AMGEN-JPNCT2013058898

PATIENT
  Age: 48 Year
  Sex: Male

DRUGS (17)
  1. DENOSUMAB [Suspect]
     Indication: METASTASES TO BONE
     Dosage: 120 MG, UNK 2012/10/10, 11/7, 12/5, 2013/1/9, 2/6, 3/6, 4/3, 5/1, 5/29, 6/26, 7/24, 8/28, 9/25, 10/3
     Route: 058
     Dates: start: 20121010
  2. CARBOPLATIN [Concomitant]
     Indication: PRODUCT USED FOR UNKNOWN INDICATION
     Dosage: UNK
     Route: 065
     Dates: start: 20120518
  3. PACLITAXEL [Concomitant]
     Indication: PRODUCT USED FOR UNKNOWN INDICATION
     Dosage: UNK
     Route: 065
     Dates: start: 20120802
  4. ASPARA-CA [Concomitant]
     Dosage: UNK
     Route: 048
     Dates: start: 20121010
  5. ALFAROL [Concomitant]
     Dosage: UNK
     Route: 048
     Dates: start: 20121010
  6. PEMETREXED [Concomitant]
     Dosage: UNK
     Route: 065
     Dates: start: 20120518, end: 20120518
  7. GEMCITABINE [Concomitant]
     Dosage: UNK
     Route: 065
     Dates: start: 20120622, end: 20120706
  8. ERLOTINIB [Concomitant]
     Dosage: UNK
     Route: 065
     Dates: start: 20120911, end: 20130305
  9. SELBEX [Concomitant]
     Dosage: UNK
     Route: 048
  10. LANSOPRAZOLE [Concomitant]
     Dosage: UNK
     Route: 048
     Dates: start: 20121026
  11. LOBU [Concomitant]
     Dosage: UNK
     Route: 048
  12. OXYCONTIN [Concomitant]
     Route: 048
     Dates: start: 20121205, end: 20130516
  13. MAGMITT [Concomitant]
     Dosage: UNK
     Route: 048
  14. CODEINE PHOSPHATE [Concomitant]
     Route: 048
     Dates: start: 20130322
  15. GASCON [Concomitant]
     Route: 048
     Dates: start: 20130526
  16. MEIACT [Concomitant]
     Route: 048
     Dates: start: 20130813, end: 20130905
  17. KLARICID                           /00984601/ [Concomitant]
     Dosage: UNK
     Route: 048
     Dates: start: 20130925, end: 20131201

REACTIONS (3)
  - Osteonecrosis of jaw [Not Recovered/Not Resolved]
  - Osteomyelitis [Recovered/Resolved]
  - Febrile neutropenia [Recovered/Resolved]
